FAERS Safety Report 13356261 (Version 1)
Quarter: 2017Q1

REPORT INFORMATION
  Report Type: Spontaneous
  Country: US (occurrence: US)
  Receive Date: 20170321
  Receipt Date: 20170321
  Transmission Date: 20170429
  Serious: No
  Sender: FDA-Public Use
  Company Number: US-TAKEDA-2017TUS005242

PATIENT
  Age: 47 Year
  Sex: Female
  Weight: 74.83 kg

DRUGS (2)
  1. ENTYVIO [Suspect]
     Active Substance: VEDOLIZUMAB
     Indication: COLITIS ULCERATIVE
     Dosage: 300 MG, UNK
     Route: 042
     Dates: start: 201610
  2. UCERIS [Suspect]
     Active Substance: BUDESONIDE
     Indication: COLITIS ULCERATIVE
     Dosage: UNK, QOD
     Route: 065
     Dates: start: 201601

REACTIONS (6)
  - Infusion site extravasation [Recovered/Resolved]
  - Weight decreased [Recovering/Resolving]
  - Blood pressure increased [Unknown]
  - Drug ineffective [Unknown]
  - Infusion site bruising [Not Recovered/Not Resolved]
  - Infusion site swelling [Recovered/Resolved]

NARRATIVE: CASE EVENT DATE: 20170303
